FAERS Safety Report 22016339 (Version 2)
Quarter: 2023Q1

REPORT INFORMATION
  Report Type: Spontaneous
  Country: US (occurrence: US)
  Receive Date: 20230221
  Receipt Date: 20230305
  Transmission Date: 20230418
  Serious: Yes (Other)
  Sender: FDA-Public Use
  Company Number: US-BEH-2023155525

PATIENT
  Age: 69 Year
  Sex: Female

DRUGS (17)
  1. HIZENTRA [Suspect]
     Active Substance: HUMAN IMMUNOGLOBULIN G
     Indication: Chronic sinusitis
     Dosage: UNK UNK, QW
     Route: 065
     Dates: end: 202212
  2. HIZENTRA [Suspect]
     Active Substance: HUMAN IMMUNOGLOBULIN G
     Dosage: 9 GRAM, QW
     Route: 058
  3. AMIODARONE HYDROCHLORIDE [Concomitant]
     Active Substance: AMIODARONE HYDROCHLORIDE
  4. ATIVAN [Concomitant]
     Active Substance: LORAZEPAM
  5. CYMBALTA [Concomitant]
     Active Substance: DULOXETINE HYDROCHLORIDE
  6. ENTRESTO [Concomitant]
     Active Substance: SACUBITRIL\VALSARTAN
  7. ESTRACE [Concomitant]
     Active Substance: ESTRADIOL
  8. FIORICET [Concomitant]
     Active Substance: ACETAMINOPHEN\BUTALBITAL\CAFFEINE
  9. FLUTICASONE [Concomitant]
     Active Substance: FLUTICASONE
  10. FOLIC ACID [Concomitant]
     Active Substance: FOLIC ACID
  11. GENTEAL TEARS [HYPROMELLOSE] [Concomitant]
  12. MAXALT [Concomitant]
     Active Substance: RIZATRIPTAN BENZOATE
  13. MELATONIN [Concomitant]
     Active Substance: MELATONIN
  14. METHOCARBAMOL [Concomitant]
     Active Substance: METHOCARBAMOL
  15. ROPINIROLE [Concomitant]
     Active Substance: ROPINIROLE
  16. DICLOFENAC [Concomitant]
     Active Substance: DICLOFENAC
  17. ZONISAMIDE [Concomitant]
     Active Substance: ZONISAMIDE

REACTIONS (16)
  - Ventricular tachycardia [Unknown]
  - Chest pain [Recovering/Resolving]
  - Fall [Unknown]
  - Amnesia [Unknown]
  - Multiple fractures [Unknown]
  - Upper limb fracture [Unknown]
  - Skull fracture [Unknown]
  - Loss of consciousness [Unknown]
  - Cardiac failure [Unknown]
  - No adverse event [Unknown]
  - Insurance issue [Unknown]
  - Viral myocarditis [Unknown]
  - Off label use [Unknown]
  - Cardiac pacemaker insertion [Unknown]
  - Dyspnoea [Unknown]
  - Chest pain [Unknown]

NARRATIVE: CASE EVENT DATE: 20230214
